FAERS Safety Report 24362970 (Version 2)
Quarter: 2024Q4

REPORT INFORMATION
  Report Type: Spontaneous
  Country: AU (occurrence: AT)
  Receive Date: 20240925
  Receipt Date: 20241202
  Transmission Date: 20250115
  Serious: Yes (Other)
  Sender: BAYER HEALTHCARE PHARMACEUTICALS INC.
  Company Number: AU-BAYER-2024A134356

PATIENT
  Age: 67 Year
  Sex: Male
  Weight: 104 kg

DRUGS (13)
  1. NUBEQA [Suspect]
     Active Substance: DAROLUTAMIDE
     Indication: Hormone-refractory prostate cancer
     Dosage: 600 MG, BID
     Route: 048
     Dates: start: 202308
  2. DOCETAXEL [Concomitant]
     Active Substance: DOCETAXEL
     Indication: Hormone-dependent prostate cancer
     Dosage: UNK
  3. FIRMAGON [Concomitant]
     Active Substance: DEGARELIX ACETATE
     Dosage: 120 MG 2 X 1
     Route: 058
  4. FIRMAGON [Concomitant]
     Active Substance: DEGARELIX ACETATE
     Dosage: 80 MG, Q4WK
     Route: 058
     Dates: start: 202306
  5. CAL SUP+VITAMIN D [Concomitant]
     Dosage: UNK
  6. DUTAGLANDIN [Concomitant]
     Dosage: 0.5/0.4 MG
  7. HYDROMORPHONE HYDROCHLORIDE [Concomitant]
     Active Substance: HYDROMORPHONE HYDROCHLORIDE
     Dosage: 2 MG
  8. DIPYRONE [Concomitant]
     Active Substance: DIPYRONE
     Dosage: 500 MG
  9. CANDESARTAN CILEXETIL\HYDROCHLOROTHIAZIDE [Concomitant]
     Active Substance: CANDESARTAN CILEXETIL\HYDROCHLOROTHIAZIDE
     Dosage: UNK
  10. POLYETHYLENE GLYCOL 3350\POTASSIUM CHLORIDE\SODIUM BICARBONATE\SODIUM [Concomitant]
     Active Substance: POLYETHYLENE GLYCOL 3350\POTASSIUM CHLORIDE\SODIUM BICARBONATE\SODIUM CHLORIDE
     Dosage: 12.5 MG
  11. SERTRALINE HYDROCHLORIDE [Concomitant]
     Active Substance: SERTRALINE HYDROCHLORIDE
     Dosage: 50 MG
  12. TAXOTERE [Concomitant]
     Active Substance: DOCETAXEL
     Dosage: 50 MG/M2  BIWEEKLY(IV - 9 CYCLES PLANNED)
     Route: 042
     Dates: start: 202308
  13. PREDNISOLONE [Concomitant]
     Active Substance: PREDNISOLONE
     Dosage: 10 MG, QD
     Route: 048

REACTIONS (7)
  - Polyneuropathy [None]
  - Neuropathy peripheral [None]
  - Weight increased [None]
  - Increased appetite [None]
  - Paraesthesia [Recovering/Resolving]
  - Hyporeflexia [Recovering/Resolving]
  - Dyspnoea exertional [Recovering/Resolving]

NARRATIVE: CASE EVENT DATE: 20231010
